FAERS Safety Report 8740869 (Version 7)
Quarter: 2013Q2

REPORT INFORMATION
  Report Type: Spontaneous
  Country: US (occurrence: US)
  Receive Date: 20120823
  Receipt Date: 20130412
  Transmission Date: 20140414
  Serious: Yes (Hospitalization, Disabling, Other)
  Sender: FDA-Public Use
  Company Number: US-MERCK-1208USA007482

PATIENT
  Sex: Female
  Weight: 74.83 kg

DRUGS (3)
  1. FOSAMAX PLUS D [Suspect]
     Indication: OSTEOPOROSIS
     Dosage: 70 MG, QW
     Route: 048
     Dates: start: 20051221
  2. FOSAMAX [Suspect]
     Indication: OSTEOPOROSIS
     Dosage: 70 MG, QW
     Route: 048
     Dates: start: 20070129, end: 20120522
  3. ALENDRONATE SODIUM [Suspect]
     Indication: OSTEOPOROSIS
     Dosage: 70 MG, QW
     Route: 048
     Dates: start: 20080211, end: 20120522

REACTIONS (29)
  - Open reduction of fracture [Not Recovered/Not Resolved]
  - Haemorrhagic anaemia [Unknown]
  - Surgery [Unknown]
  - Ankle operation [Unknown]
  - Femur fracture [Not Recovered/Not Resolved]
  - Osteoarthritis [Unknown]
  - Vitamin D deficiency [Unknown]
  - Calcium deficiency [Unknown]
  - Mixed connective tissue disease [Unknown]
  - Anaemia [Unknown]
  - Blood cholesterol increased [Unknown]
  - Cardiac murmur [Unknown]
  - Palpitations [Unknown]
  - Conduction disorder [Unknown]
  - Peptic ulcer [Unknown]
  - Fall [Unknown]
  - Fracture delayed union [Not Recovered/Not Resolved]
  - Cardiac valve disease [Unknown]
  - Depression [Unknown]
  - Anaemia [Unknown]
  - Tonsillectomy [Unknown]
  - Adenoidectomy [Unknown]
  - Spinal compression fracture [Unknown]
  - Osteopenia [Unknown]
  - Osteoarthritis [Unknown]
  - Device breakage [Unknown]
  - Vertigo [Unknown]
  - Constipation [Unknown]
  - Arthralgia [Unknown]
